FAERS Safety Report 20483146 (Version 6)
Quarter: 2024Q1

REPORT INFORMATION
  Report Type: Spontaneous
  Country: DE (occurrence: DE)
  Receive Date: 20220217
  Receipt Date: 20240215
  Transmission Date: 20240409
  Serious: Yes (Hospitalization, Other)
  Sender: FDA-Public Use
  Company Number: DE-002147023-NVSC2022DE021688

PATIENT
  Age: 66 Year
  Sex: Male
  Weight: 119 kg

DRUGS (15)
  1. ASPIRIN [Suspect]
     Active Substance: ASPIRIN
     Indication: Product used for unknown indication
     Dosage: 100 MILLIGRAM, ONCE A DAY (1-0-0)
     Route: 065
  2. RAMIPRIL [Suspect]
     Active Substance: RAMIPRIL
     Indication: Product used for unknown indication
     Dosage: 2.5 MILLIGRAM, TWO TIMES A DAY
     Route: 065
  3. SIMVASTATIN [Suspect]
     Active Substance: SIMVASTATIN
     Indication: Product used for unknown indication
     Dosage: 20 MILLIGRAM, ONCE A DAY (0-0-1)
     Route: 065
  4. TAMSULOSIN [Suspect]
     Active Substance: TAMSULOSIN
     Indication: Product used for unknown indication
     Dosage: 0.4 MILLIGRAM, ONCE A DAY (1-0-0)
     Route: 065
  5. COSENTYX [Suspect]
     Active Substance: SECUKINUMAB
     Indication: Psoriasis
     Dosage: 300 MILLIGRAM EVERY MONTH
     Route: 058
     Dates: start: 20160112
  6. COSENTYX [Suspect]
     Active Substance: SECUKINUMAB
     Indication: Psoriatic arthropathy
  7. ATORVASTATIN [Concomitant]
     Active Substance: ATORVASTATIN
     Indication: Product used for unknown indication
     Dosage: UNK UNK, ONCE A DAY (0-0-1)
     Route: 065
  8. TICAGRELOR [Concomitant]
     Active Substance: TICAGRELOR
     Indication: Product used for unknown indication
     Dosage: UNK UNK, ONCE A DAY (BID 1-0-1)
     Route: 065
  9. BISOPROLOL [Concomitant]
     Active Substance: BISOPROLOL\BISOPROLOL FUMARATE
     Indication: Product used for unknown indication
     Dosage: UNK UNK, ONCE A DAY (1-0-0)
     Route: 065
  10. CANDESARTAN [Concomitant]
     Active Substance: CANDESARTAN
     Indication: Product used for unknown indication
     Dosage: UNK UNK, ONCE A DAY (BID 1-0-1)
     Route: 065
  11. PANTOPRAZOLE [Concomitant]
     Active Substance: PANTOPRAZOLE
     Indication: Product used for unknown indication
     Dosage: UNK UNK, ONCE A DAY (1-0-0)
     Route: 065
  12. AMOXICILLIN\CLAVULANIC ACID [Concomitant]
     Active Substance: AMOXICILLIN\CLAVULANIC ACID
     Indication: Gastrointestinal inflammation
     Dosage: 1-1-1 UP TO AND INCLUDING 15/12/2022
     Route: 065
  13. TADALAFIL [Concomitant]
     Active Substance: TADALAFIL
     Indication: Product used for unknown indication
     Dosage: UNK
     Route: 065
  14. CLOPIDOGREL [Concomitant]
     Active Substance: CLOPIDOGREL BISULFATE
     Indication: Product used for unknown indication
     Dosage: UNK
     Route: 065
  15. METRONIDAZOLE [Concomitant]
     Active Substance: METRONIDAZOLE
     Indication: Gastrointestinal inflammation
     Dosage: (1-1-1 UP TO AND INCLUDING 15/12/2022
     Route: 065

REACTIONS (36)
  - Acute myocardial infarction [Recovered/Resolved]
  - Pancreatitis acute [Recovered/Resolved]
  - Diverticulum intestinal haemorrhagic [Recovered/Resolved]
  - Hepatic steatosis [Recovered/Resolved]
  - Rectal haemorrhage [Unknown]
  - Gastritis erosive [Unknown]
  - Diverticulum [Recovered/Resolved]
  - Disease recurrence [Recovered/Resolved]
  - Anaemia [Recovered/Resolved]
  - Aortic aneurysm [Unknown]
  - Colitis [Recovered/Resolved]
  - Large intestine polyp [Unknown]
  - Thrombosis [Unknown]
  - Haematochezia [Recovered/Resolved]
  - Chronic coronary syndrome [Not Recovered/Not Resolved]
  - Coronary artery stenosis [Recovered/Resolved]
  - Myocardial infarction [Recovered/Resolved]
  - Blood glucose increased [Unknown]
  - Chest discomfort [Unknown]
  - Blood creatinine increased [Recovered/Resolved]
  - Obesity [Unknown]
  - General physical health deterioration [Unknown]
  - Lipase increased [Unknown]
  - Haematocrit decreased [Unknown]
  - White blood cell count increased [Recovered/Resolved]
  - Red blood cell count decreased [Unknown]
  - Haemoglobin decreased [Unknown]
  - Abdominal pain upper [Unknown]
  - Renal cyst [Unknown]
  - C-reactive protein increased [Recovered/Resolved]
  - Benign prostatic hyperplasia [Unknown]
  - Hiatus hernia [Recovered/Resolved]
  - Haemorrhoids [Recovered/Resolved]
  - Gastrooesophageal reflux disease [Recovered/Resolved]
  - Mean cell haemoglobin increased [Unknown]
  - Blood alkaline phosphatase increased [Unknown]

NARRATIVE: CASE EVENT DATE: 20200601
